FAERS Safety Report 15567903 (Version 1)
Quarter: 2018Q4

REPORT INFORMATION
  Report Type: Spontaneous
  Country: US (occurrence: US)
  Receive Date: 20181030
  Receipt Date: 20181030
  Transmission Date: 20190205
  Serious: Yes (Other)
  Sender: FDA-Public Use
  Company Number: US-AKORN PHARMACEUTICALS-2018AKN01556

PATIENT
  Sex: Male
  Weight: 50.79 kg

DRUGS (1)
  1. MYORISAN [Suspect]
     Active Substance: ISOTRETINOIN
     Indication: ACNE
     Dosage: 40 MG, 1X/DAY
     Dates: start: 2018, end: 2018

REACTIONS (6)
  - Mood altered [Recovered/Resolved]
  - Off label use [Recovered/Resolved]
  - Dry skin [Unknown]
  - Alopecia [Recovered/Resolved]
  - Anger [Unknown]
  - Erectile dysfunction [Not Recovered/Not Resolved]

NARRATIVE: CASE EVENT DATE: 2018
